FAERS Safety Report 10454481 (Version 2)
Quarter: 2014Q4

REPORT INFORMATION
  Report Type: Spontaneous
  Country: US (occurrence: US)
  Receive Date: 20140915
  Receipt Date: 20141201
  Transmission Date: 20150528
  Serious: No
  Sender: FDA-Public Use
  Company Number: US-PFIZER INC-2014253876

PATIENT
  Age: 69 Year
  Sex: Female
  Weight: 63.49 kg

DRUGS (5)
  1. ASPIRIN. [Concomitant]
     Active Substance: ASPIRIN
     Dosage: UNK
  2. LYRICA [Suspect]
     Active Substance: PREGABALIN
     Dosage: 50 MG, 1X/DAY
     Dates: start: 20140827
  3. LYRICA [Suspect]
     Active Substance: PREGABALIN
     Indication: ARTHRITIS
     Dosage: 50 MG, 1X/DAY
     Route: 048
     Dates: start: 2014, end: 2014
  4. LYRICA [Suspect]
     Active Substance: PREGABALIN
     Dosage: 60 MG, 1X/DAY
     Dates: start: 2014, end: 201410
  5. TOPIRAMATE. [Concomitant]
     Active Substance: TOPIRAMATE
     Dosage: UNK
     Dates: start: 2009, end: 2014

REACTIONS (8)
  - Abnormal dreams [Unknown]
  - Euphoric mood [Not Recovered/Not Resolved]
  - Insomnia [Unknown]
  - Energy increased [Not Recovered/Not Resolved]
  - Feeling abnormal [Unknown]
  - Vision blurred [Not Recovered/Not Resolved]
  - Thinking abnormal [Unknown]
  - Disturbance in attention [Not Recovered/Not Resolved]

NARRATIVE: CASE EVENT DATE: 2014
